FAERS Safety Report 23088528 (Version 1)
Quarter: 2023Q4

REPORT INFORMATION
  Report Type: Spontaneous
  Country: US (occurrence: US)
  Receive Date: 20231020
  Receipt Date: 20231020
  Transmission Date: 20240109
  Serious: Yes (Hospitalization, Other)
  Sender: FDA-Public Use
  Company Number: US-H14001-16-01006

PATIENT

DRUGS (4)
  1. INFUMORPH [Suspect]
     Active Substance: MORPHINE SULFATE
     Indication: Pain
     Dosage: 1587 MILLIGRAM
     Route: 037
  2. INFUMORPH [Suspect]
     Active Substance: MORPHINE SULFATE
     Indication: Spinal pain
     Dosage: 1734 MILLIGRAM
     Route: 037
  3. POTASSIUM CHLORIDE [Concomitant]
     Active Substance: POTASSIUM CHLORIDE
     Indication: Product used for unknown indication
     Dosage: 20MEQ, EXTENDED RELEASE (PART/CRYST) ONE
     Route: 048
  4. HYDROCHLOROTHIAZIDE [Concomitant]
     Active Substance: HYDROCHLOROTHIAZIDE
     Indication: Product used for unknown indication
     Dosage: 25MG
     Route: 048

REACTIONS (6)
  - Pain [Not Recovered/Not Resolved]
  - Drug ineffective [Unknown]
  - Back pain [Unknown]
  - Muscle spasms [Unknown]
  - Hypoaesthesia [Unknown]
  - Emotional distress [Unknown]
